APPROVED DRUG PRODUCT: TETRACYCLINE HYDROCHLORIDE
Active Ingredient: TETRACYCLINE HYDROCHLORIDE
Strength: 250MG
Dosage Form/Route: CAPSULE;ORAL
Application: A062540 | Product #001
Applicant: SUPERPHARM CORP
Approved: Mar 21, 1985 | RLD: No | RS: No | Type: DISCN